FAERS Safety Report 25017831 (Version 1)
Quarter: 2025Q1

REPORT INFORMATION
  Report Type: Spontaneous
  Country: SA (occurrence: SA)
  Receive Date: 20250227
  Receipt Date: 20250227
  Transmission Date: 20250408
  Serious: Yes (Hospitalization, Other)
  Sender: INVENTIA HEALTHCARE LTD
  Company Number: SA-IHL-000653

PATIENT
  Age: 31 Year
  Sex: Male

DRUGS (1)
  1. PALIPERIDONE [Suspect]
     Active Substance: PALIPERIDONE
     Indication: Schizophrenia
     Dosage: LONG-ACTING INJECTABLE FORMULATION
     Route: 065

REACTIONS (3)
  - Hypothyroidism [Recovered/Resolved]
  - Drug ineffective [Unknown]
  - Hyperprolactinaemia [Unknown]
